FAERS Safety Report 19475933 (Version 1)
Quarter: 2021Q2

REPORT INFORMATION
  Report Type: Spontaneous
  Country: FR (occurrence: FR)
  Receive Date: 20210630
  Receipt Date: 20210630
  Transmission Date: 20210717
  Serious: Yes (Other)
  Sender: FDA-Public Use
  Company Number: FR-TEVA-2021-FR-1926323

PATIENT
  Age: 16 Year
  Sex: Male
  Weight: 62 kg

DRUGS (1)
  1. ISOTRETINOINE ACNETRAIT 40 MG, CAPSULE MOLLE [Suspect]
     Active Substance: ISOTRETINOIN
     Indication: ACNE
     Dosage: 50 MG
     Route: 048
     Dates: start: 20201001, end: 20210527

REACTIONS (1)
  - Hallucination, auditory [Recovering/Resolving]

NARRATIVE: CASE EVENT DATE: 20210401
